FAERS Safety Report 8529895-7 (Version None)
Quarter: 2012Q3

REPORT INFORMATION
  Report Type: 
  Country: None (occurrence: None)
  Receive Date: 20120723
  Receipt Date: 20120717
  Transmission Date: 20120928
  Serious: Yes (Hospitalization)
  Sender: FDA-Public Use
  Company Number: DE-US-EMD SERONO, INC.-7140491

PATIENT
  Sex: Male
  Weight: 75 kg

DRUGS (2)
  1. REBIF [Suspect]
     Indication: MULTIPLE SCLEROSIS
     Route: 058
     Dates: start: 20101123, end: 20120501
  2. MIRTAZAPINE [Concomitant]
     Indication: DEPRESSION
     Route: 048
     Dates: start: 20090101

REACTIONS (4)
  - MULTIPLE SCLEROSIS RELAPSE [None]
  - CENTRAL NERVOUS SYSTEM LESION [None]
  - DIZZINESS [None]
  - ATAXIA [None]
